FAERS Safety Report 12128887 (Version 1)
Quarter: 2016Q1

REPORT INFORMATION
  Report Type: Other
  Country: US (occurrence: US)
  Receive Date: 20160229
  Receipt Date: 20160229
  Transmission Date: 20160526
  Serious: No
  Sender: FDA-Public Use
  Company Number: US-ACORDA-ACO_119312_2015

PATIENT
  Sex: Female

DRUGS (1)
  1. AMPYRA [Suspect]
     Active Substance: DALFAMPRIDINE
     Indication: PRODUCT USED FOR UNKNOWN INDICATION
     Dosage: 10 MG, Q 12 HRS
     Route: 048
     Dates: start: 20151031

REACTIONS (8)
  - Dizziness [Unknown]
  - Balance disorder [Unknown]
  - Insomnia [Unknown]
  - Urinary tract infection [Unknown]
  - Back pain [Unknown]
  - Asthenia [Unknown]
  - Headache [Unknown]
  - Constipation [Unknown]
